FAERS Safety Report 16374774 (Version 1)
Quarter: 2019Q2

REPORT INFORMATION
  Report Type: Spontaneous
  Country: CA (occurrence: CA)
  Receive Date: 20190530
  Receipt Date: 20190530
  Transmission Date: 20190711
  Serious: Yes (Other)
  Sender: FDA-Public Use
  Company Number: CA-PRINSTON PHARMACEUTICAL INC.-2019PRN00534

PATIENT
  Age: 23 Year
  Sex: Male

DRUGS (1)
  1. BUPROPION HYDROCHLORIDE. [Suspect]
     Active Substance: BUPROPION HYDROCHLORIDE
     Dosage: 15 G
     Route: 048

REACTIONS (3)
  - Cardiogenic shock [Unknown]
  - Overdose [Recovered/Resolved]
  - Depressed level of consciousness [Unknown]
